FAERS Safety Report 15905846 (Version 5)
Quarter: 2019Q2

REPORT INFORMATION
  Report Type: Spontaneous
  Country: US (occurrence: US)
  Receive Date: 20190204
  Receipt Date: 20190503
  Transmission Date: 20190711
  Serious: No
  Sender: FDA-Public Use
  Company Number: US-JNJFOC-20190135513

PATIENT
  Sex: Male
  Weight: 99.79 kg

DRUGS (1)
  1. INVEGA SUSTENNA [Suspect]
     Active Substance: PALIPERIDONE PALMITATE
     Indication: SCHIZOPHRENIA
     Route: 030
     Dates: start: 2018, end: 201809

REACTIONS (7)
  - Anxiety [Recovering/Resolving]
  - Paraesthesia [Not Recovered/Not Resolved]
  - Suspected product contamination [Unknown]
  - Hypertension [Not Recovered/Not Resolved]
  - Visual impairment [Not Recovered/Not Resolved]
  - Poor quality product administered [Unknown]
  - Vasoconstriction [Not Recovered/Not Resolved]

NARRATIVE: CASE EVENT DATE: 2018
